FAERS Safety Report 15332200 (Version 4)
Quarter: 2019Q1

REPORT INFORMATION
  Report Type: Report from Study
  Country: US (occurrence: US)
  Receive Date: 20180829
  Receipt Date: 20190107
  Transmission Date: 20190417
  Serious: Yes (Other)
  Sender: FDA-Public Use
  Company Number: US-JAZZ-2018-US-013040

PATIENT
  Sex: Male

DRUGS (7)
  1. XYREM [Suspect]
     Active Substance: SODIUM OXYBATE
     Dosage: 1 G, FIRST DOSE
     Route: 048
     Dates: start: 201302, end: 201307
  2. XYREM [Suspect]
     Active Substance: SODIUM OXYBATE
     Indication: NARCOLEPSY
     Dosage: 1 G, QD
     Route: 048
     Dates: start: 200712, end: 200804
  3. XYREM [Suspect]
     Active Substance: SODIUM OXYBATE
     Dosage: 0.5 G, SECOND DOSE
     Route: 048
     Dates: start: 201302, end: 201307
  4. XYREM [Suspect]
     Active Substance: SODIUM OXYBATE
     Indication: CATAPLEXY
     Dosage: DOSE ADJUSTMENT
     Route: 048
     Dates: start: 200804, end: 200908
  5. XYREM [Suspect]
     Active Substance: SODIUM OXYBATE
     Dosage: 1 G, FIRST DOSE
     Route: 048
     Dates: start: 201012, end: 201107
  6. XYREM [Suspect]
     Active Substance: SODIUM OXYBATE
     Dosage: 0.5 G, SECOND DOSE
     Route: 048
     Dates: start: 201012, end: 201107
  7. XYREM [Suspect]
     Active Substance: SODIUM OXYBATE
     Dosage: 1 G, BID
     Route: 048
     Dates: start: 200909, end: 201005

REACTIONS (5)
  - Urinary tract infection [Unknown]
  - Gastrooesophageal reflux disease [Not Recovered/Not Resolved]
  - Urinary tract disorder [Not Recovered/Not Resolved]
  - Pre-existing condition improved [Unknown]
  - Oesophageal achalasia [Unknown]

NARRATIVE: CASE EVENT DATE: 2008
